FAERS Safety Report 16131851 (Version 4)
Quarter: 2020Q3

REPORT INFORMATION
  Report Type: Report from Study
  Country: None (occurrence: US)
  Receive Date: 20190329
  Receipt Date: 20200720
  Transmission Date: 20201102
  Serious: Yes (Other)
  Sender: FDA-Public Use
  Company Number: US-ABBVIE-18K-163-2506141-00

PATIENT
  Age: 79 Year
  Sex: Male
  Weight: 69.01 kg

DRUGS (17)
  1. HUMIRA [Suspect]
     Active Substance: ADALIMUMAB
     Route: 058
     Dates: start: 2018, end: 2019
  2. TAMSULOSIN [Concomitant]
     Active Substance: TAMSULOSIN
     Indication: URINARY INCONTINENCE
  3. TOLTERODINE [Concomitant]
     Active Substance: TOLTERODINE
     Indication: URINARY INCONTINENCE
  4. PENTASA [Concomitant]
     Active Substance: MESALAMINE
     Indication: CROHN^S DISEASE
  5. MAGNESIUM OXIDE. [Concomitant]
     Active Substance: MAGNESIUM OXIDE
     Indication: SUPPLEMENTATION THERAPY
  6. IRON [Concomitant]
     Active Substance: IRON
     Indication: SUPPLEMENTATION THERAPY
  7. VITAMIN C [Concomitant]
     Active Substance: ASCORBIC ACID
     Indication: VITAMIN SUPPLEMENTATION
  8. AMLODIPINE [Suspect]
     Active Substance: AMLODIPINE BESYLATE
     Indication: HYPERTENSION
     Route: 065
     Dates: start: 201910
  9. VITAMIN D [Concomitant]
     Active Substance: VITAMIN D NOS
     Indication: VITAMIN SUPPLEMENTATION
  10. HUMIRA [Suspect]
     Active Substance: ADALIMUMAB
     Route: 058
     Dates: start: 20181109, end: 2018
  11. VIAGRA [Concomitant]
     Active Substance: SILDENAFIL CITRATE
     Indication: ERECTILE DYSFUNCTION
  12. HUMIRA [Suspect]
     Active Substance: ADALIMUMAB
     Route: 058
     Dates: start: 2018, end: 2018
  13. GEMFIBROZIL. [Concomitant]
     Active Substance: GEMFIBROZIL
     Indication: LIVER DISORDER
  14. PRILOSEC [Concomitant]
     Active Substance: OMEPRAZOLE MAGNESIUM
     Indication: GASTROOESOPHAGEAL REFLUX DISEASE
  15. HUMIRA [Suspect]
     Active Substance: ADALIMUMAB
     Indication: CROHN^S DISEASE
     Route: 058
     Dates: start: 2016, end: 2018
  16. HUMIRA [Suspect]
     Active Substance: ADALIMUMAB
     Indication: CROHN^S DISEASE
     Route: 058
     Dates: start: 201901
  17. VITAMIN B12 [Concomitant]
     Active Substance: CYANOCOBALAMIN
     Indication: SUPPLEMENTATION THERAPY

REACTIONS (42)
  - Respiratory tract infection viral [Recovered/Resolved]
  - Food poisoning [Not Recovered/Not Resolved]
  - Crohn^s disease [Recovered/Resolved]
  - Erythema [Not Recovered/Not Resolved]
  - Chest pain [Recovered/Resolved]
  - Rash papular [Recovering/Resolving]
  - Hypertension [Unknown]
  - Pain [Unknown]
  - Nipple enlargement [Unknown]
  - Breast enlargement [Unknown]
  - Breast discolouration [Unknown]
  - Neoplasm skin [Not Recovered/Not Resolved]
  - Chest discomfort [Recovered/Resolved]
  - Dysphonia [Not Recovered/Not Resolved]
  - Crohn^s disease [Recovered/Resolved]
  - Lower respiratory tract infection [Recovered/Resolved]
  - Discomfort [Not Recovered/Not Resolved]
  - Respiratory tract infection bacterial [Recovered/Resolved]
  - Therapeutic product effect incomplete [Unknown]
  - Rash [Not Recovered/Not Resolved]
  - Gastrointestinal sounds abnormal [Unknown]
  - Abdominal distension [Unknown]
  - Injection site pain [Recovered/Resolved]
  - Gastrointestinal obstruction [Unknown]
  - Anastomotic complication [Unknown]
  - Eczema [Recovered/Resolved]
  - Crohn^s disease [Not Recovered/Not Resolved]
  - Furuncle [Not Recovered/Not Resolved]
  - Meningitis [Unknown]
  - Dyschezia [Recovered/Resolved]
  - Discomfort [Unknown]
  - Post procedural constipation [Unknown]
  - Pruritus [Recovering/Resolving]
  - Rash papular [Recovered/Resolved]
  - Rash vesicular [Recovering/Resolving]
  - Rash pruritic [Recovering/Resolving]
  - Lung disorder [Unknown]
  - Dermal cyst [Recovered/Resolved]
  - Lung opacity [Recovered/Resolved]
  - Chest discomfort [Recovered/Resolved]
  - Gynaecomastia [Unknown]
  - Constipation [Unknown]

NARRATIVE: CASE EVENT DATE: 2018
